FAERS Safety Report 17290917 (Version 1)
Quarter: 2020Q1

REPORT INFORMATION
  Report Type: Spontaneous
  Country: IQ (occurrence: IQ)
  Receive Date: 20200121
  Receipt Date: 20200121
  Transmission Date: 20200409
  Serious: Yes (Life-Threatening)
  Sender: FDA-Public Use
  Company Number: IQ-BAYER-2019-219772

PATIENT
  Age: 50 Year
  Sex: Male

DRUGS (1)
  1. ULTRAVIST [Suspect]
     Active Substance: IOPROMIDE
     Dosage: UNK UNK, ONCE
     Dates: start: 20190730, end: 20190730

REACTIONS (3)
  - Nausea [None]
  - Tachycardia [None]
  - Pyrexia [None]

NARRATIVE: CASE EVENT DATE: 20190730
